FAERS Safety Report 7799241-5 (Version None)
Quarter: 2011Q4

REPORT INFORMATION
  Report Type: 
  Country: None (occurrence: None)
  Receive Date: 20111004
  Receipt Date: 20111004
  Transmission Date: 20120403
  Serious: No
  Sender: FDA-Public Use
  Company Number: None

PATIENT
  Age: 7 Year
  Sex: Male
  Weight: 19 kg

DRUGS (6)
  1. ROCURONIUM BROMIDE [Suspect]
     Indication: ENDOTRACHEAL INTUBATION
     Dosage: ROCURONIUM 20 MG (APPROX 1 MG/KG) ONCE IV
     Route: 042
     Dates: start: 20110922
  2. ROCURONIUM BROMIDE [Suspect]
     Indication: NEUROMUSCULAR BLOCKING THERAPY
     Dosage: ROCURONIUM 20 MG (APPROX 1 MG/KG) ONCE IV
     Route: 042
     Dates: start: 20110922
  3. MIDAZOLAM HCL [Concomitant]
  4. LIDOCAINE [Concomitant]
  5. PROPOFOL [Concomitant]
  6. FENTANYL [Concomitant]

REACTIONS (1)
  - DRUG EFFECT DELAYED [None]
